FAERS Safety Report 4644688-9 (Version None)
Quarter: 2005Q2

REPORT INFORMATION
  Report Type: 
  Country: None (occurrence: None)
  Receive Date: 20050425
  Receipt Date: 20050425
  Transmission Date: 20051028
  Serious: Yes (Other)
  Sender: FDA-Public Use
  Company Number: None

PATIENT
  Age: 46 Year
  Sex: Female
  Weight: 113.3993 kg

DRUGS (6)
  1. NEURONTIN [Suspect]
     Indication: COMPLEX REGIONAL PAIN SYNDROME
     Dosage: 600 MG   TID
     Dates: start: 19960801, end: 19991010
  2. NEURONTIN [Suspect]
     Indication: OSTEOARTHRITIS
     Dosage: 600 MG   TID
     Dates: start: 19960801, end: 19991010
  3. NEURONTIN [Suspect]
     Indication: PAIN
     Dosage: 600 MG   TID
     Dates: start: 19960801, end: 19991010
  4. NEURONTIN [Suspect]
     Indication: COMPLEX REGIONAL PAIN SYNDROME
     Dosage: 600 MG   TID
     Dates: start: 20010630, end: 20010702
  5. NEURONTIN [Suspect]
     Indication: OSTEOARTHRITIS
     Dosage: 600 MG   TID
     Dates: start: 20010630, end: 20010702
  6. NEURONTIN [Suspect]
     Indication: PAIN
     Dosage: 600 MG   TID
     Dates: start: 20010630, end: 20010702

REACTIONS (11)
  - APATHY [None]
  - COGNITIVE DISORDER [None]
  - DELUSION [None]
  - DRUG INEFFECTIVE [None]
  - DRUG PRESCRIBING ERROR [None]
  - HALLUCINATION [None]
  - IMPAIRED WORK ABILITY [None]
  - INTELLIGENCE TEST ABNORMAL [None]
  - PERSONALITY CHANGE [None]
  - PSYCHOTIC DISORDER [None]
  - SUICIDAL IDEATION [None]
